FAERS Safety Report 17398883 (Version 3)
Quarter: 2020Q1

REPORT INFORMATION
  Report Type: Report from Study
  Country: JP (occurrence: JP)
  Receive Date: 20200210
  Receipt Date: 20200310
  Transmission Date: 20200409
  Serious: Yes (Hospitalization)
  Sender: FDA-Public Use
  Company Number: JP-EISAI MEDICAL RESEARCH-EC-2020-069786

PATIENT
  Age: 77 Year
  Sex: Male
  Weight: 57 kg

DRUGS (24)
  1. HIRUDOID [Concomitant]
     Active Substance: GLYCOSAMINOGLYCANS
  2. L-CARBOCISTEINE [Concomitant]
     Active Substance: CARBOCYSTEINE
  3. VOGLIBOSE [Concomitant]
     Active Substance: VOGLIBOSE
  4. ACUATIM [Concomitant]
     Active Substance: NADIFLOXACIN
  5. LENVATINIB [Suspect]
     Active Substance: LENVATINIB
     Route: 048
     Dates: start: 20190514, end: 20190916
  6. SENNOSIDE [Concomitant]
     Active Substance: SENNOSIDES
  7. EQUA [Concomitant]
     Active Substance: VILDAGLIPTIN
  8. ANTEBATE:OINTMENT [Concomitant]
  9. PASTARON [Concomitant]
     Active Substance: UREA
  10. CALONAL [Concomitant]
     Active Substance: ACETAMINOPHEN
  11. OMEPRAZOLE. [Concomitant]
     Active Substance: OMEPRAZOLE
  12. RUPAFIN [Concomitant]
     Active Substance: RUPATADINE FUMARATE
  13. THYRADIN S [Concomitant]
     Active Substance: LEVOTHYROXINE SODIUM
  14. PEMBROLIZUMAB. [Suspect]
     Active Substance: PEMBROLIZUMAB
     Indication: RENAL CANCER
     Route: 041
     Dates: start: 20190423, end: 20191225
  15. MOHRUS TAPE:L [Concomitant]
  16. LENVATINIB [Suspect]
     Active Substance: LENVATINIB
     Indication: RENAL CANCER
     Route: 048
     Dates: start: 20190423, end: 20190508
  17. ATARAX-P [Concomitant]
     Active Substance: HYDROXYZINE HYDROCHLORIDE
  18. AMBROXOL HYDROCHLORIDE [Concomitant]
     Active Substance: AMBROXOL HYDROCHLORIDE
  19. LENVATINIB [Suspect]
     Active Substance: LENVATINIB
     Route: 048
     Dates: start: 20191030, end: 20191225
  20. INSULIN GLARGINE [Concomitant]
     Active Substance: INSULIN GLARGINE
  21. ROSUVASTATIN OD [Concomitant]
  22. MAGMITT [Concomitant]
     Active Substance: MAGNESIUM OXIDE
  23. BAYASPIRIN [Concomitant]
     Active Substance: ASPIRIN
  24. KARY UNI [Concomitant]
     Active Substance: PIRENOXINE

REACTIONS (1)
  - Autoimmune pancreatitis [Recovering/Resolving]

NARRATIVE: CASE EVENT DATE: 20191226
